FAERS Safety Report 5087846-4 (Version None)
Quarter: 2006Q3

REPORT INFORMATION
  Report Type: 
  Country: None (occurrence: None)
  Receive Date: 20060824
  Receipt Date: 20060822
  Transmission Date: 20061208
  Serious: Yes (Other)
  Sender: FDA-Public Use
  Company Number: US-GLAXOSMITHKLINE-A0617643A

PATIENT
  Age: 79 Year
  Sex: Female

DRUGS (4)
  1. CITRUCEL FIBERSMOOTHIE [Suspect]
     Indication: GASTROINTESTINAL DISORDER
     Route: 048
  2. TOPROL-XL [Concomitant]
  3. NORVASC [Concomitant]
  4. MAGNESIUM [Concomitant]

REACTIONS (2)
  - DIARRHOEA [None]
  - RECTAL HAEMORRHAGE [None]
